FAERS Safety Report 20035448 (Version 1)
Quarter: 2021Q4

REPORT INFORMATION
  Report Type: Spontaneous
  Country: US (occurrence: US)
  Receive Date: 20211104
  Receipt Date: 20211104
  Transmission Date: 20220303
  Serious: Yes (Other)
  Sender: FDA-Public Use
  Company Number: US-NOVOPROD-792795

PATIENT
  Sex: Female

DRUGS (2)
  1. FIASP [Suspect]
     Active Substance: INSULIN ASPART
     Dosage: UNK (NEW VIAL)
     Route: 065
  2. FIASP [Suspect]
     Active Substance: INSULIN ASPART
     Indication: Product used for unknown indication
     Dosage: UNK
     Route: 065
     Dates: start: 202007

REACTIONS (2)
  - Blood glucose increased [Recovered/Resolved]
  - Product quality issue [Recovered/Resolved]

NARRATIVE: CASE EVENT DATE: 20210201
